FAERS Safety Report 17480443 (Version 3)
Quarter: 2021Q3

REPORT INFORMATION
  Report Type: Spontaneous
  Country: CA (occurrence: CA)
  Receive Date: 20200229
  Receipt Date: 20210729
  Transmission Date: 20211014
  Serious: Yes (Hospitalization, Other)
  Sender: FDA-Public Use
  Company Number: CA-SAMSUNG BIOEPIS-SB-2020-06432

PATIENT
  Age: 53 Year
  Sex: Male
  Weight: 74 kg

DRUGS (6)
  1. INFLIXIMAB [Suspect]
     Active Substance: INFLIXIMAB
     Indication: COLITIS ULCERATIVE
     Dosage: UNKNOWN
     Route: 042
  2. INSULIN [Concomitant]
     Active Substance: INSULIN NOS
     Indication: DIABETES MELLITUS
     Dosage: UNKNOWN
     Route: 065
  3. IBUPROFEN. [Concomitant]
     Active Substance: IBUPROFEN
     Indication: PRODUCT USED FOR UNKNOWN INDICATION
     Dosage: UNKNOWN
     Route: 065
  4. METFORMIN HYDROCHLORIDE/SITAGLIPTIN PHOSPHATE MONOHYDRATE [Concomitant]
     Active Substance: METFORMIN HYDROCHLORIDE\SITAGLIPTIN PHOSPHATE
     Indication: DIABETES MELLITUS
     Dosage: UNKNOWN
     Route: 065
  5. PREDNISONE. [Concomitant]
     Active Substance: PREDNISONE
     Indication: COLITIS
     Dosage: UNKNOWN
     Route: 048
  6. SOLU?MEDROL [Concomitant]
     Active Substance: METHYLPREDNISOLONE SODIUM SUCCINATE
     Indication: PRODUCT USED FOR UNKNOWN INDICATION
     Dosage: UNKNOWN
     Route: 042

REACTIONS (15)
  - Abdominal pain [Unknown]
  - Hypertension [Unknown]
  - Weight increased [Unknown]
  - Drug level below therapeutic [Unknown]
  - Therapeutic product effect incomplete [Unknown]
  - Off label use [Unknown]
  - Product use issue [Unknown]
  - Blood pressure fluctuation [Unknown]
  - Cough [Unknown]
  - Blood pressure increased [Unknown]
  - Condition aggravated [Unknown]
  - Nausea [Unknown]
  - Arthralgia [Unknown]
  - Fatigue [Unknown]
  - Heart rate decreased [Unknown]
